FAERS Safety Report 6048521-2 (Version None)
Quarter: 2009Q1

REPORT INFORMATION
  Report Type: 
  Country: None (occurrence: None)
  Receive Date: 20090123
  Receipt Date: 20090119
  Transmission Date: 20090719
  Serious: Yes (Other)
  Sender: FDA-Public Use
  Company Number: D0060118A

PATIENT
  Age: 67 Year
  Sex: Female
  Weight: 64 kg

DRUGS (5)
  1. TYVERB [Suspect]
     Indication: BREAST CANCER
     Dosage: 750MG PER DAY
     Route: 048
     Dates: start: 20080223, end: 20080707
  2. PACLITAXEL [Concomitant]
     Indication: BREAST CANCER
     Dosage: 90MGM2 WEEKLY
     Route: 042
     Dates: start: 20080623, end: 20081013
  3. ZOPICLON [Concomitant]
     Indication: SLEEP DISORDER
     Dosage: 7.5MG PER DAY
     Route: 048
  4. LYRICA [Concomitant]
     Indication: PAIN
     Dosage: 100MG TWICE PER DAY
     Route: 048
  5. LOPEDIUM [Concomitant]
     Route: 048
     Dates: start: 20080201

REACTIONS (2)
  - DIARRHOEA [None]
  - GASTROINTESTINAL TOXICITY [None]
